FAERS Safety Report 5824716-5 (Version None)
Quarter: 2008Q3

REPORT INFORMATION
  Report Type: 
  Country: None (occurrence: None)
  Receive Date: 20080722
  Receipt Date: 20080716
  Transmission Date: 20090109
  Serious: Yes (Hospitalization)
  Sender: FDA-Public Use
  Company Number: 163-21880-08060631

PATIENT
  Age: 57 Year
  Sex: Female
  Weight: 83 kg

DRUGS (9)
  1. REVLIMID [Suspect]
     Indication: CHRONIC LYMPHOCYTIC LEUKAEMIA
     Dosage: ORAL
     Route: 048
  2. FLUDARABINE PHOSPHATE [Suspect]
     Indication: CHRONIC LYMPHOCYTIC LEUKAEMIA
     Dosage: 44.5 MG, DAY 1-5 Q 28 DAYS, INTRAVENOUS DRIP
     Route: 041
     Dates: start: 20080225, end: 20080530
  3. RITUXAN [Suspect]
     Indication: CHRONIC LYMPHOCYTIC LEUKAEMIA
     Dosage: 667.5 MG, Q 28 DAYS, INTRAVENOUS DRIP
     Route: 041
     Dates: start: 20080225, end: 20080526
  4. ACETAMINOPHEN [Concomitant]
  5. BENADRYL [Concomitant]
  6. HYDROCORTISONE [Concomitant]
  7. ACYCLOVIR (ACICLOVIR) (TABLETS) [Concomitant]
  8. BACTRIM [Concomitant]
  9. ALLOPURINOL [Concomitant]

REACTIONS (8)
  - ANOREXIA [None]
  - ASTHENIA [None]
  - BACTERIAL INFECTION [None]
  - BLOOD CULTURE POSITIVE [None]
  - DYSPNOEA EXERTIONAL [None]
  - FATIGUE [None]
  - MALAISE [None]
  - TREMOR [None]
